FAERS Safety Report 4635929-2 (Version None)
Quarter: 2005Q2

REPORT INFORMATION
  Report Type: 
  Country: None (occurrence: None)
  Receive Date: 20050413
  Receipt Date: 20050405
  Transmission Date: 20051028
  Serious: Yes (Death)
  Sender: FDA-Public Use
  Company Number: 163-20785-04120490

PATIENT
  Age: 31 Year
  Sex: Female

DRUGS (3)
  1. VINCRISTINE SULFATE [Suspect]
     Indication: BRAIN NEOPLASM MALIGNANT
     Dosage: 300 MG, QHS, ORAL
     Route: 048
     Dates: start: 20030714, end: 20040316
  2. CARBOPLATIN [Suspect]
     Dosage: INTRA-ARTERIAL
     Route: 013
     Dates: start: 20040429, end: 20040429
  3. ETOPOSIDE [Suspect]
     Dosage: INTRA-ARTERIAL
     Route: 013
     Dates: start: 20040429, end: 20040429

REACTIONS (1)
  - CHEYNE-STOKES RESPIRATION [None]
